FAERS Safety Report 19899851 (Version 2)
Quarter: 2021Q4

REPORT INFORMATION
  Report Type: Spontaneous
  Country: AU (occurrence: AU)
  Receive Date: 20210929
  Receipt Date: 20211112
  Transmission Date: 20220303
  Serious: Yes (Other)
  Sender: FDA-Public Use
  Company Number: AU-MYLANLABS-2021M1066541

PATIENT
  Sex: Male

DRUGS (1)
  1. CARBIDOPA\LEVODOPA [Suspect]
     Active Substance: CARBIDOPA\LEVODOPA
     Indication: Parkinson^s disease
     Dosage: 1 DOSAGE FORM, TID, 25/100MG
     Dates: start: 2021

REACTIONS (3)
  - Drug ineffective [Unknown]
  - Tremor [Unknown]
  - Fall [Unknown]

NARRATIVE: CASE EVENT DATE: 20210101
